FAERS Safety Report 6053186-X (Version None)
Quarter: 2009Q1

REPORT INFORMATION
  Report Type: 
  Country: None (occurrence: None)
  Receive Date: 20090123
  Receipt Date: 20090111
  Transmission Date: 20090719
  Serious: Yes (Other)
  Sender: FDA-Public Use
  Company Number: 141403

PATIENT
  Age: 6 Year
  Sex: Male

DRUGS (9)
  1. METHOTREXATE INJECTION      ^DBL^ (METHOTREXATE) [Suspect]
     Indication: ACUTE LYMPHOCYTIC LEUKAEMIA
     Dosage: INTRATHECAL
     Route: 037
  2. CYTARABINE [Suspect]
     Indication: ACUTE LYMPHOCYTIC LEUKAEMIA
     Dosage: OVER TWO YEARS
  3. DBL METHOTREXATE       2.5MG TABLET BOTTLE (METHOTREXATE) [Suspect]
     Indication: ACUTE LYMPHOCYTIC LEUKAEMIA
     Dosage: ORAL/OVER TWO YEARS
     Route: 048
  4. VINCRISTINE SULPHATE INJECTION        (VINCRISTINE) [Suspect]
     Indication: ACUTE LYMPHOCYTIC LEUKAEMIA
     Dosage: OVER TWO YEARS
  5. CYCLOPHOSPHAMIDE [Suspect]
     Indication: ACUTE LYMPHOCYTIC LEUKAEMIA
     Dosage: OVER TWO YEARS
  6. (ASPARAGINASE) [Suspect]
     Indication: ACUTE LYMPHOCYTIC LEUKAEMIA
     Dosage: OVER TWO YEARS
  7. MERCAPTOPURINE [Suspect]
     Indication: ACUTE LYMPHOCYTIC LEUKAEMIA
     Dosage: OVER TWO YEARS
  8. PREDNISOLONE [Suspect]
     Indication: ACUTE LYMPHOCYTIC LEUKAEMIA
     Dosage: OVER TWO YEARS
  9. (THERAPEUTIC RADIOPHARMACEUTICALS) [Suspect]
     Indication: ACUTE LYMPHOCYTIC LEUKAEMIA
     Dosage: 18 GRAY IN 15 FRACTIONS/OVER EIGHT MONTHS

REACTIONS (4)
  - FINE MOTOR DELAY [None]
  - FRONTAL LOBE EPILEPSY [None]
  - LEUKOENCEPHALOPATHY [None]
  - RADIATION INJURY [None]
